FAERS Safety Report 6761796-7 (Version None)
Quarter: 2010Q2

REPORT INFORMATION
  Report Type: 
  Country: None (occurrence: None)
  Receive Date: 20100607
  Receipt Date: 20100602
  Transmission Date: 20101027
  Serious: Yes (Other)
  Sender: FDA-Public Use
  Company Number: 2010SP024339

PATIENT
  Age: 82 Year
  Sex: Male

DRUGS (7)
  1. CLARITIN [Suspect]
     Indication: HYPERSENSITIVITY
     Dosage: 5 MG;Q12H;PO
     Route: 048
     Dates: start: 20100425, end: 20100427
  2. CLARITIN [Suspect]
     Indication: PRURITUS
     Dosage: 5 MG;Q12H;PO
     Route: 048
     Dates: start: 20100425, end: 20100427
  3. PLAVIX [Concomitant]
  4. NIASPAN [Concomitant]
  5. SOTALOL [Concomitant]
  6. FOLBIC [Concomitant]
  7. DIGOXIN [Concomitant]

REACTIONS (2)
  - CHROMATURIA [None]
  - URINE OUTPUT DECREASED [None]
